FAERS Safety Report 6051258-7 (Version None)
Quarter: 2009Q1

REPORT INFORMATION
  Report Type: 
  Country: None (occurrence: None)
  Receive Date: 20090126
  Receipt Date: 20090115
  Transmission Date: 20090719
  Serious: Yes (Death)
  Sender: FDA-Public Use
  Company Number: US-BIOGENIDEC-2009BI001625

PATIENT
  Age: 60 Year
  Sex: Female
  Weight: 54 kg

DRUGS (2)
  1. AVONEX [Suspect]
     Indication: MULTIPLE SCLEROSIS
     Route: 030
     Dates: start: 20030101, end: 20040101
  2. AVONEX [Suspect]
     Route: 030
     Dates: start: 20040101, end: 20080701

REACTIONS (5)
  - ARRHYTHMIA [None]
  - CHEST PAIN [None]
  - FALL [None]
  - INFLUENZA LIKE ILLNESS [None]
  - VOMITING [None]
